FAERS Safety Report 19456062 (Version 3)
Quarter: 2021Q3

REPORT INFORMATION
  Report Type: Spontaneous
  Country: US (occurrence: US)
  Receive Date: 20210624
  Receipt Date: 20210812
  Transmission Date: 20211014
  Serious: Yes (Other)
  Sender: FDA-Public Use
  Company Number: US-SA-2021SA205663

PATIENT
  Age: 32 Year
  Sex: Male

DRUGS (1)
  1. DUPIXENT [Suspect]
     Active Substance: DUPILUMAB
     Indication: DERMATITIS ATOPIC
     Dosage: 300 MG, QOW
     Route: 058
     Dates: start: 202106

REACTIONS (6)
  - Eyelids pruritus [Unknown]
  - Mental impairment [Unknown]
  - Condition aggravated [Unknown]
  - Drug ineffective [Unknown]
  - General physical condition abnormal [Unknown]
  - Eyelid irritation [Unknown]

NARRATIVE: CASE EVENT DATE: 2021
